FAERS Safety Report 18364011 (Version 2)
Quarter: 2022Q2

REPORT INFORMATION
  Report Type: Spontaneous
  Country: US (occurrence: US)
  Receive Date: 20201009
  Receipt Date: 20220609
  Transmission Date: 20220720
  Serious: Yes (Other)
  Sender: FDA-Public Use
  Company Number: US-SAARTEMIS-SAC202010060662

PATIENT
  Age: 65 Year
  Sex: Male

DRUGS (1)
  1. ZANTAC [Suspect]
     Active Substance: RANITIDINE HYDROCHLORIDE
     Indication: Hyperchlorhydria
     Dosage: 150 MG, QD
     Route: 065
     Dates: start: 198609, end: 201712

REACTIONS (1)
  - Colorectal cancer stage II [Recovering/Resolving]

NARRATIVE: CASE EVENT DATE: 20170101
